FAERS Safety Report 8462635-9 (Version None)
Quarter: 2012Q2

REPORT INFORMATION
  Report Type: 
  Country: None (occurrence: None)
  Receive Date: 20120625
  Receipt Date: 20120621
  Transmission Date: 20120825
  Serious: Yes (Death)
  Sender: FDA-Public Use
  Company Number: US-ROCHE-1049901

PATIENT
  Sex: Female
  Weight: 68.1 kg

DRUGS (2)
  1. XELODA [Suspect]
     Indication: COLORECTAL CANCER METASTATIC
     Route: 048
     Dates: start: 20120225
  2. ZOFRAN [Concomitant]
     Indication: NAUSEA
     Dosage: DOSE: UNKNOWN
     Route: 048
     Dates: start: 20110224

REACTIONS (2)
  - NAUSEA [None]
  - DEATH [None]
